FAERS Safety Report 9704157 (Version 1)
Quarter: 2013Q4

REPORT INFORMATION
  Report Type: Spontaneous
  Country: US (occurrence: US)
  Receive Date: 20131122
  Receipt Date: 20131122
  Transmission Date: 20140711
  Serious: No
  Sender: FDA-Public Use
  Company Number: US-GLAXOSMITHKLINE-A1036610A

PATIENT
  Sex: Female

DRUGS (7)
  1. WELLBUTRIN [Suspect]
     Indication: DEPRESSION
     Dosage: 200MG TWICE PER DAY
     Route: 048
  2. DIET PILL [Concomitant]
  3. SYNTHROID [Concomitant]
  4. CYTOMEL [Concomitant]
  5. ORTHO TRICYCLEN [Concomitant]
  6. ZYRTEC [Concomitant]
  7. SEAWEED [Concomitant]

REACTIONS (7)
  - Underdose [Recovering/Resolving]
  - Hypertension [Unknown]
  - Depression [Unknown]
  - Asthenia [Unknown]
  - Middle insomnia [Unknown]
  - Fatigue [Unknown]
  - Abnormal behaviour [Unknown]
